FAERS Safety Report 17797354 (Version 1)
Quarter: 2020Q2

REPORT INFORMATION
  Report Type: Report from Study
  Country: GB (occurrence: GB)
  Receive Date: 20200518
  Receipt Date: 20200518
  Transmission Date: 20200714
  Serious: Yes (Other)
  Sender: FDA-Public Use
  Company Number: NVSC2020GB134052

PATIENT
  Sex: Male

DRUGS (1)
  1. HYRIMOZ [Suspect]
     Active Substance: ADALIMUMAB-ADAZ
     Indication: COLITIS
     Dosage: 1 DF, Q2W
     Route: 065

REACTIONS (3)
  - Haematochezia [Unknown]
  - Mucous stools [Unknown]
  - Abnormal faeces [Unknown]
